FAERS Safety Report 5671671-7 (Version None)
Quarter: 2008Q1

REPORT INFORMATION
  Report Type: 
  Country: None (occurrence: None)
  Receive Date: 20080313
  Receipt Date: 20080306
  Transmission Date: 20080703
  Serious: Yes (Life-Threatening)
  Sender: FDA-Public Use
  Company Number: TCI2008A00294

PATIENT
  Age: 77 Year
  Sex: Male

DRUGS (2)
  1. TAKEPRON INJECTION            (LANSOPRAZOLE) [Suspect]
     Indication: GASTROINTESTINAL HAEMORRHAGE
     Dosage: 60 MG (30 MG, 2 IN 1 D) INTRAVENOUS
     Route: 042
     Dates: start: 20070112, end: 20080117
  2. KAYTWO N        (MENATETRENONE) (INJECTION) [Concomitant]

REACTIONS (4)
  - GALLBLADDER CANCER [None]
  - JAUNDICE [None]
  - RENAL IMPAIRMENT [None]
  - URINE OUTPUT DECREASED [None]
